FAERS Safety Report 4604811-9 (Version None)
Quarter: 2005Q2

REPORT INFORMATION
  Report Type: 
  Country: None (occurrence: None)
  Receive Date: 20050224
  Receipt Date: 20031204
  Transmission Date: 20051028
  Serious: Yes (Hospitalization)
  Sender: FDA-Public Use
  Company Number: STA-AE-03-036

PATIENT
  Age: 89 Year
  Sex: Female
  Weight: 42.6381 kg

DRUGS (5)
  1. ATENOLOL [Suspect]
     Indication: HYPERTENSION
     Dosage: 50MG X 1 DAY, ORAL
     Route: 048
     Dates: end: 20030810
  2. FOSAMAX [Concomitant]
  3. LIPITOR [Concomitant]
  4. ZESTRIL [Concomitant]
  5. POTASSIUM CHLORIDE [Concomitant]

REACTIONS (3)
  - BRADYCARDIA [None]
  - CHEST PAIN [None]
  - SYNCOPE [None]
